FAERS Safety Report 4291925-9 (Version None)
Quarter: 2004Q1

REPORT INFORMATION
  Report Type: 
  Country: None (occurrence: None)
  Receive Date: 20040210
  Receipt Date: 20040210
  Transmission Date: 20041129
  Serious: No
  Sender: FDA-Public Use
  Company Number: None

PATIENT
  Age: 63 Year
  Sex: Male
  Weight: 143 kg

DRUGS (9)
  1. ACTOS [Suspect]
     Indication: DIABETES MELLITUS NON-INSULIN-DEPENDENT
     Dosage: 30 MG  QD ORAL
     Route: 048
     Dates: start: 20021115, end: 20031113
  2. NPH INSULIN [Concomitant]
  3. INSULIN REG [Concomitant]
  4. IRBESARTAN [Concomitant]
  5. SIMVASTATIN [Concomitant]
  6. HYDROCHLOROTHIAZIDE [Concomitant]
  7. PAROXETINE [Concomitant]
  8. ATENOLOL [Concomitant]
  9. OMEPRAZOLE [Concomitant]

REACTIONS (4)
  - DYSPNOEA [None]
  - FATIGUE [None]
  - OEDEMA PERIPHERAL [None]
  - WEIGHT INCREASED [None]
